FAERS Safety Report 23084816 (Version 3)
Quarter: 2024Q1

REPORT INFORMATION
  Report Type: Spontaneous
  Country: US (occurrence: US)
  Receive Date: 20231019
  Receipt Date: 20240103
  Transmission Date: 20240409
  Serious: Yes (Death, Hospitalization, Other)
  Sender: FDA-Public Use
  Company Number: US-PFIZER INC-PV202300171421

PATIENT
  Age: 67 Year
  Sex: Female
  Weight: 104.33 kg

DRUGS (1)
  1. IBRANCE [Suspect]
     Active Substance: PALBOCICLIB
     Indication: Breast cancer metastatic
     Dosage: ONCE DAILY FOR 3 WEEKS AND THEN OFF OF THE MED FOR A WEEK
     Route: 048

REACTIONS (4)
  - Pain [Fatal]
  - Transfusion [Fatal]
  - Neoplasm progression [Fatal]
  - Headache [Fatal]

NARRATIVE: CASE EVENT DATE: 20231015
